FAERS Safety Report 7893670-7 (Version None)
Quarter: 2011Q4

REPORT INFORMATION
  Report Type: 
  Country: None (occurrence: None)
  Receive Date: 20111104
  Receipt Date: 20111027
  Transmission Date: 20120403
  Serious: Yes (Hospitalization)
  Sender: FDA-Public Use
  Company Number: JP-BRISTOL-MYERS SQUIBB COMPANY-16125833

PATIENT
  Age: 72 Year
  Sex: Male
  Weight: 48 kg

DRUGS (5)
  1. XALATAN [Concomitant]
     Dates: start: 19990721
  2. GLUCOBAY [Suspect]
     Indication: TYPE 2 DIABETES MELLITUS
     Dosage: TABS
     Route: 048
     Dates: start: 20090408, end: 20110928
  3. SAXAGLIPTIN [Suspect]
     Indication: TYPE 2 DIABETES MELLITUS
     Dosage: TABS
     Route: 048
     Dates: start: 20101028, end: 20110928
  4. CEFAZOLIN SODIUM [Concomitant]
     Dosage: POWDER THERAPY DATES: AUG 2011 TO 28-SEP-2011 RESTARTED ON : OCT 3, 2011
     Route: 048
     Dates: start: 20110804
  5. MAGMITT [Concomitant]
     Indication: CONSTIPATION
     Dosage: TABS THERAPY DATES: MAY-2011 TO 28-SEP-2011 RESTARTED ON : 18 OCT-2011
     Route: 048
     Dates: start: 20110507, end: 20110928

REACTIONS (1)
  - ILEUS [None]
